FAERS Safety Report 4432281-2 (Version None)
Quarter: 2004Q3

REPORT INFORMATION
  Report Type: 
  Country: None (occurrence: None)
  Receive Date: 20040820
  Receipt Date: 20040804
  Transmission Date: 20050211
  Serious: Yes (Other)
  Sender: FDA-Public Use
  Company Number: 8006963

PATIENT
  Age: 17 Year
  Sex: Male

DRUGS (2)
  1. KEPPRA [Suspect]
     Indication: EPILEPSY
     Dosage: 2000 MG, D; PO
     Route: 048
     Dates: start: 20040401
  2. DEPAKENE [Concomitant]

REACTIONS (1)
  - NEUTROPENIA [None]
